FAERS Safety Report 19316651 (Version 1)
Quarter: 2021Q2

REPORT INFORMATION
  Report Type: Spontaneous
  Country: NL (occurrence: NL)
  Receive Date: 20210527
  Receipt Date: 20210527
  Transmission Date: 20210717
  Serious: Yes (Hospitalization)
  Sender: FDA-Public Use
  Company Number: NL-TEVA-2021-NL-1916149

PATIENT
  Age: 76 Year
  Sex: Male
  Weight: 72.9 kg

DRUGS (14)
  1. AMLODIPINE [Concomitant]
     Active Substance: AMLODIPINE BESYLATE
     Dosage: 10 MG (MILLIGRAM)THERAPY START DATE :THERAPY END DATE :ASKU
  2. ACETYLSALICYLZUUR TABLET  80MG / BRAND NAME NOT SPECIFIED [Concomitant]
     Active Substance: ASPIRIN
     Dosage: 80 MG (MILLIGRAM)THERAPY START DATE :THERAPY END DATE:ASKU
  3. DALTEPARINE INJVLST 12.500IE/ML / FRAGMIN   2500 INJVLST 12.500IE/ML W [Concomitant]
     Dosage: 1 DOSAGE FORMS DAILY; 1 X PER DAY 2500 IE:THERAPY START DATE :THERAPY END DATE :ASKU
  4. COLECALCIFEROL CAPSULE   5600IE / BRAND NAME NOT SPECIFIED [Concomitant]
     Active Substance: CHOLECALCIFEROL
     Dosage: 5600 UNITSTHERAPY START DATE :THERAPY END DATE :ASKU
  5. INSULINE ASPART INFVLST   1E/ML / BRAND NAME NOT SPECIFIED [Concomitant]
     Dosage: INFUSION SOLUTION, 1 UNITS / ML (UNITS PER MILLILITER)THERAPY START DATE :THERAPY END DATE :ASKU
  6. PARACETAMOL TABLET 1000MG / BRAND NAME NOT SPECIFIED [Concomitant]
     Dosage: 1000 MG (MILLIGRAM)THERAPY START DATE :THERAPY END DATE:ASKU
  7. HALOPERIDOL TABLET  1MG / BRAND NAME NOT SPECIFIED [Concomitant]
     Dosage: 1 MG (MILLIGRAM)THERAPY START DATE :THERAPY END DATE:ASKU
  8. INSULINE GLARGINE 100E/ML INJVLST / LANTUS INJ 100E/ML PATROON 3ML [Concomitant]
     Dosage: 100 UNITS / ML (UNITS PER MILLILITER)THERAPY START DATE :THERAPY END DATE :ASKU
  9. LINEZOLID TABLET FO 600MG / BRAND NAME NOT SPECIFIED [Suspect]
     Active Substance: LINEZOLID
     Indication: DEVICE RELATED INFECTION
     Dosage: 1200 MILLIGRAM DAILY; 600 MG TWICE A DAY
     Dates: start: 20210410, end: 20210506
  10. CIPROFLOXACINE TABLET 750MG / BRAND NAME NOT SPECIFIED [Concomitant]
     Active Substance: CIPROFLOXACIN
     Dosage: 750 MG (MILLIGRAM)THERAPY START DATE :THERAPY END DATE :ASKU
  11. HYDROXOCOBALAMINE INJVLST  500UG/ML / HYDROCOBAMINE INJVLST 500MCG/ML [Concomitant]
     Dosage: INJECTION SOLUTION, 500 UG / ML (MICROGRAMS PER MILLILITER):THERAPY END DATE :ASKU
  12. LISINOPRIL TABLET 20MG / BRAND NAME NOT SPECIFIED [Concomitant]
     Active Substance: LISINOPRIL
     Dosage: 20 MG (MILLIGRAM)THERAPY START DATE :THERAPY END DATE :ASKU
  13. TEMAZEPAM CAPSULE 10MG / BRAND NAME NOT SPECIFIED [Concomitant]
     Active Substance: TEMAZEPAM
     Dosage: 10 MG (MILLIGRAM)THERAPY START DATE :THERAPY END DATE :ASKU
  14. HYDROCHLOORTHIAZIDE TABLET 12,5MG / BRAND NAME NOT SPECIFIED [Concomitant]
     Active Substance: HYDROCHLOROTHIAZIDE
     Dosage: 12,5 MG (MILLIGRAM)THERAPY START DATE :THERAPY END DATE:ASKU

REACTIONS (3)
  - Thrombocytopenia [Not Recovered/Not Resolved]
  - Haemoglobin decreased [Not Recovered/Not Resolved]
  - Lymphopenia [Not Recovered/Not Resolved]

NARRATIVE: CASE EVENT DATE: 20210420
